FAERS Safety Report 19410165 (Version 1)
Quarter: 2021Q2

REPORT INFORMATION
  Report Type: Spontaneous
  Country: US (occurrence: US)
  Receive Date: 20210614
  Receipt Date: 20210614
  Transmission Date: 20210717
  Serious: No
  Sender: FDA-Public Use
  Company Number: US-AUROBINDO-AUR-APL-2020-054405

PATIENT
  Age: 41 Year
  Sex: Female
  Weight: 72.5 kg

DRUGS (1)
  1. FAMOTIDINE TABLET USP (OTC) [Suspect]
     Active Substance: FAMOTIDINE
     Indication: GASTROOESOPHAGEAL REFLUX DISEASE
     Dosage: 4 DOSAGE FORM, ONCE A DAY
     Route: 065
     Dates: start: 20201021

REACTIONS (2)
  - Drug ineffective [Unknown]
  - Product substitution issue [Unknown]
